FAERS Safety Report 19592358 (Version 1)
Quarter: 2021Q3

REPORT INFORMATION
  Report Type: Spontaneous
  Country: US (occurrence: US)
  Receive Date: 20210720
  Receipt Date: 20210720
  Transmission Date: 20211014
  Serious: Yes (Other)
  Sender: FDA-Public Use
  Company Number: None

PATIENT
  Age: 52 Year
  Sex: Female
  Weight: 109.8 kg

DRUGS (15)
  1. POTASSIUM [Concomitant]
     Active Substance: POTASSIUM
  2. BIEST [Suspect]
     Active Substance: ESTRADIOL\ESTRIOL
     Indication: LABORATORY TEST ABNORMAL
     Dosage: ?          QUANTITY:1 ML;?
     Route: 061
     Dates: start: 20200718, end: 20200807
  3. PROGESTERONE 50MG CAPSULE [Suspect]
     Active Substance: PROGESTERONE
     Indication: LABORATORY TEST ABNORMAL
     Dosage: ?          QUANTITY:1 CAPSULE(S);?
     Route: 048
     Dates: start: 20200718, end: 20200807
  4. LASIX [Concomitant]
     Active Substance: FUROSEMIDE
  5. CARVEDILOL. [Concomitant]
     Active Substance: CARVEDILOL
  6. FISH OIL [Concomitant]
     Active Substance: FISH OIL
  7. SYNTHROID [Concomitant]
     Active Substance: LEVOTHYROXINE SODIUM
  8. K2 [Concomitant]
     Active Substance: JWH-018
  9. VITAMIN C [Concomitant]
     Active Substance: ASCORBIC ACID
  10. VIT D [Concomitant]
     Active Substance: VITAMIN D NOS
  11. PROGESTERONE 50MG CAPSULE [Suspect]
     Active Substance: PROGESTERONE
     Indication: BLOOD DISORDER
     Dosage: ?          QUANTITY:1 CAPSULE(S);?
     Route: 048
     Dates: start: 20200718, end: 20200807
  12. BIEST [Suspect]
     Active Substance: ESTRADIOL\ESTRIOL
     Indication: BLOOD DISORDER
     Dosage: ?          QUANTITY:1 ML;?
     Route: 061
     Dates: start: 20200718, end: 20200807
  13. DHEA 5MG CAPSULE [Suspect]
     Active Substance: PRASTERONE
  14. LIOTHYRONINE [Concomitant]
     Active Substance: LIOTHYRONINE
  15. LISINOPRIL. [Concomitant]
     Active Substance: LISINOPRIL

REACTIONS (4)
  - Hernia [None]
  - Cardiac failure [None]
  - Abdominal pain upper [None]
  - Pain [None]

NARRATIVE: CASE EVENT DATE: 20200808
